FAERS Safety Report 23735277 (Version 1)
Quarter: 2024Q2

REPORT INFORMATION
  Report Type: Spontaneous
  Country: US (occurrence: US)
  Receive Date: 20240412
  Receipt Date: 20240412
  Transmission Date: 20240716
  Serious: Yes (Other)
  Sender: FDA-Public Use
  Company Number: US-CORCEPT THERAPEUTICS INC.-US-2023CRT000858

PATIENT
  Age: 41 Year
  Sex: Female

DRUGS (3)
  1. KORLYM [Suspect]
     Active Substance: MIFEPRISTONE
     Indication: Product used for unknown indication
     Dosage: 900 MG, QD
     Route: 065
  2. KORLYM [Suspect]
     Active Substance: MIFEPRISTONE
     Dosage: 600 MG, QD
     Route: 065
  3. SPIRONOLACTONE [Suspect]
     Active Substance: SPIRONOLACTONE
     Indication: Product used for unknown indication
     Dosage: 200 MG, QD
     Route: 065

REACTIONS (1)
  - Hypokalaemia [Unknown]
